FAERS Safety Report 17193232 (Version 1)
Quarter: 2019Q4

REPORT INFORMATION
  Report Type: Spontaneous
  Country: JP (occurrence: JP)
  Receive Date: 20191223
  Receipt Date: 20191223
  Transmission Date: 20200122
  Serious: Yes (Other)
  Sender: FDA-Public Use
  Company Number: JP-JNJFOC-20180608042

PATIENT
  Age: 6 Decade
  Sex: Female

DRUGS (4)
  1. BAKTAR [Concomitant]
     Active Substance: SULFAMETHOXAZOLE\TRIMETHOPRIM
     Route: 048
     Dates: start: 2013
  2. GENTACIN [Concomitant]
     Active Substance: GENTAMICIN SULFATE
     Indication: VULVOVAGINAL CANDIDIASIS
     Route: 061
  3. KETOCONAZOLE. [Suspect]
     Active Substance: KETOCONAZOLE
     Indication: VULVOVAGINAL CANDIDIASIS
     Dosage: UNKNOWN
     Route: 061
  4. KETOCONAZOLE. [Suspect]
     Active Substance: KETOCONAZOLE
     Indication: CANDIDA INFECTION
     Route: 061

REACTIONS (9)
  - Manufacturing materials issue [Unknown]
  - Inappropriate schedule of product administration [Unknown]
  - Renal impairment [Unknown]
  - Diabetes mellitus [Unknown]
  - Cystitis [Unknown]
  - Urine abnormality [Unknown]
  - Off label use [Unknown]
  - Product use in unapproved indication [Unknown]
  - Product prescribing error [Unknown]
